FAERS Safety Report 16192462 (Version 1)
Quarter: 2019Q2

REPORT INFORMATION
  Report Type: Spontaneous
  Country: US (occurrence: US)
  Receive Date: 20190412
  Receipt Date: 20190412
  Transmission Date: 20190711
  Serious: Yes (Death, Hospitalization)
  Sender: FDA-Public Use
  Company Number: US-009507513-1904USA004760

PATIENT
  Age: 42 Year
  Sex: Female

DRUGS (18)
  1. KLONOPIN [Concomitant]
     Active Substance: CLONAZEPAM
  2. LITHIUM. [Concomitant]
     Active Substance: LITHIUM
  3. LASIX [Concomitant]
     Active Substance: FUROSEMIDE
  4. RISPERDAL [Suspect]
     Active Substance: RISPERIDONE
     Dosage: UNK
     Route: 048
  5. SYNTHROID [Concomitant]
     Active Substance: LEVOTHYROXINE SODIUM
  6. GEODON [Concomitant]
     Active Substance: ZIPRASIDONE HYDROCHLORIDE\ZIPRASIDONE MESYLATE
  7. EFFEXOR [Suspect]
     Active Substance: VENLAFAXINE HYDROCHLORIDE
     Indication: PRODUCT USED FOR UNKNOWN INDICATION
  8. PAXIL [Suspect]
     Active Substance: PAROXETINE HYDROCHLORIDE
     Indication: PRODUCT USED FOR UNKNOWN INDICATION
  9. ZOLOFT [Concomitant]
     Active Substance: SERTRALINE HYDROCHLORIDE
  10. VALIUM [Concomitant]
     Active Substance: DIAZEPAM
  11. REMERON [Suspect]
     Active Substance: MIRTAZAPINE
     Indication: PRODUCT USED FOR UNKNOWN INDICATION
  12. AMBIEN [Concomitant]
     Active Substance: ZOLPIDEM TARTRATE
  13. PROVIGIL [Concomitant]
     Active Substance: MODAFINIL
  14. XANAX [Concomitant]
     Active Substance: ALPRAZOLAM
  15. ZYPREXA [Concomitant]
     Active Substance: OLANZAPINE
  16. RISPERDAL [Suspect]
     Active Substance: RISPERIDONE
     Indication: DEPRESSION
     Dosage: DOSAGE RANGED FROM 1-3MG BID WHEN INITIATED TO 6MG @HS WHEN THE PATIENT DIED.
     Route: 048
  17. WELLBUTRIN [Suspect]
     Active Substance: BUPROPION HYDROCHLORIDE
     Indication: PRODUCT USED FOR UNKNOWN INDICATION
  18. NEURONTIN [Concomitant]
     Active Substance: GABAPENTIN

REACTIONS (21)
  - Sleep disorder [Unknown]
  - Anaemia [Unknown]
  - Sleep apnoea syndrome [Unknown]
  - Headache [Unknown]
  - Nosocomial infection [Unknown]
  - Chronic obstructive pulmonary disease [Not Recovered/Not Resolved]
  - Depression [Unknown]
  - Tremor [Unknown]
  - Mania [Not Recovered/Not Resolved]
  - Suicidal ideation [Unknown]
  - Acute kidney injury [Unknown]
  - Hallucination, auditory [Unknown]
  - Synovial cyst removal [Unknown]
  - Hospitalisation [Unknown]
  - Orgasm abnormal [Unknown]
  - Uterine leiomyoma [Unknown]
  - Tachycardia [Unknown]
  - Weight increased [Unknown]
  - Death [Fatal]
  - Coma [Unknown]
  - Disturbance in attention [Not Recovered/Not Resolved]

NARRATIVE: CASE EVENT DATE: 19950411
